FAERS Safety Report 7357247-4 (Version None)
Quarter: 2011Q1

REPORT INFORMATION
  Report Type: 
  Country: None (occurrence: None)
  Receive Date: 20110311
  Receipt Date: 20110311
  Transmission Date: 20110831
  Serious: No
  Sender: FDA-Public Use
  Company Number: None

PATIENT
  Age: 63 Year
  Sex: Male

DRUGS (1)
  1. AMITRIPTYLINE [Suspect]
     Indication: TINNITUS
     Dosage: 25 MG QHS PO
     Route: 048
     Dates: start: 20070401

REACTIONS (3)
  - AGITATION [None]
  - INSOMNIA [None]
  - PRODUCT SUBSTITUTION ISSUE [None]
